FAERS Safety Report 17751404 (Version 3)
Quarter: 2021Q3

REPORT INFORMATION
  Report Type: Spontaneous
  Country: US (occurrence: US)
  Receive Date: 20200506
  Receipt Date: 20210721
  Transmission Date: 20211014
  Serious: No
  Sender: FDA-Public Use
  Company Number: US-SA-2019SA123618

PATIENT
  Age: 27 Year
  Sex: Male

DRUGS (2)
  1. CEREZYME [Suspect]
     Active Substance: IMIGLUCERASE
     Dosage: 2400 UNITS, QOW
     Route: 042
  2. CEREZYME [Suspect]
     Active Substance: IMIGLUCERASE
     Indication: GAUCHER^S DISEASE
     Dosage: 2400 UNITS, QOW
     Route: 042
     Dates: start: 20110923

REACTIONS (2)
  - Product dose omission issue [Unknown]
  - Product use issue [Unknown]
